FAERS Safety Report 15201340 (Version 3)
Quarter: 2018Q3

REPORT INFORMATION
  Report Type: Spontaneous
  Country: US (occurrence: US)
  Receive Date: 20180726
  Receipt Date: 20180918
  Transmission Date: 20181010
  Serious: No
  Sender: FDA-Public Use
  Company Number: US-PFIZER INC-2018301411

PATIENT
  Age: 62 Year
  Sex: Female
  Weight: 108.8 kg

DRUGS (1)
  1. ADVIL MIGRAINE [Suspect]
     Active Substance: IBUPROFEN
     Indication: MIGRAINE
     Dosage: 2 DF, DAILY (TAKE ONLY 2 PER DAY)
     Route: 048

REACTIONS (1)
  - Drug ineffective [Not Recovered/Not Resolved]
